FAERS Safety Report 9361245 (Version 2)
Quarter: 2013Q4

REPORT INFORMATION
  Report Type: Report from Study
  Country: CL (occurrence: CL)
  Receive Date: 20130621
  Receipt Date: 20131122
  Transmission Date: 20140711
  Serious: Yes (Other)
  Sender: FDA-Public Use
  Company Number: CL-BRISTOL-MYERS SQUIBB COMPANY-18966804

PATIENT
  Age: 39 Year
  Sex: Female

DRUGS (4)
  1. ORENCIA [Suspect]
     Indication: RHEUMATOID ARTHRITIS
     Dosage: INTERRUPTED ON:8NOV13.?3 VIALS.
     Route: 042
     Dates: start: 20120928
  2. PREDNISONE [Concomitant]
  3. METHOTREXATE [Concomitant]
  4. PLAQUENIL [Concomitant]

REACTIONS (4)
  - Cholecystitis acute [Unknown]
  - Influenza [Recovering/Resolving]
  - Colitis [Unknown]
  - Gastritis [Unknown]
